FAERS Safety Report 24608617 (Version 2)
Quarter: 2024Q4

REPORT INFORMATION
  Report Type: Report from Study
  Country: CA (occurrence: CA)
  Receive Date: 20241112
  Receipt Date: 20241121
  Transmission Date: 20250114
  Serious: Yes (Other)
  Sender: BIOCON
  Company Number: CA-BIOCON BIOLOGICS LIMITED-BBL2024006789

PATIENT

DRUGS (1)
  1. HULIO [Suspect]
     Active Substance: ADALIMUMAB-FKJP
     Indication: Product used for unknown indication
     Dosage: 40 MG, Q2W
     Route: 058
     Dates: start: 20240726

REACTIONS (5)
  - Knee arthroplasty [Unknown]
  - Gait disturbance [Unknown]
  - Hepatic function abnormal [Unknown]
  - Laboratory test abnormal [Unknown]
  - Arthropathy [Unknown]
